FAERS Safety Report 5808801-X (Version None)
Quarter: 2008Q3

REPORT INFORMATION
  Report Type: 
  Country: None (occurrence: None)
  Receive Date: 20080714
  Receipt Date: 20080711
  Transmission Date: 20090109
  Serious: Yes (Hospitalization)
  Sender: FDA-Public Use
  Company Number: A0737516A

PATIENT
  Age: 46 Year
  Sex: Female

DRUGS (10)
  1. LETAIRIS [Suspect]
     Indication: PULMONARY ARTERIAL HYPERTENSION
     Dosage: 5MG UNKNOWN
     Route: 048
     Dates: start: 20080523
  2. FLOLAN [Suspect]
     Indication: PULMONARY ARTERIAL HYPERTENSION
     Route: 042
  3. DOXYCYCLINE HYCLATE [Concomitant]
  4. LIPITOR [Concomitant]
  5. REVATIO [Concomitant]
  6. SPIRONOLACTONE [Concomitant]
  7. NEXIUM [Concomitant]
  8. DIGOXIN [Concomitant]
  9. LASIX [Concomitant]
  10. POTASSIUM CHLORIDE [Concomitant]

REACTIONS (2)
  - CATHETER RELATED COMPLICATION [None]
  - CATHETER RELATED INFECTION [None]
